FAERS Safety Report 6969074-8 (Version None)
Quarter: 2010Q3

REPORT INFORMATION
  Report Type: 
  Country: None (occurrence: None)
  Receive Date: 20100907
  Receipt Date: 20100824
  Transmission Date: 20110219
  Serious: Yes (Other)
  Sender: FDA-Public Use
  Company Number: PT-MYLANLABS-2010S1015433

PATIENT
  Age: 41 Year
  Sex: Male

DRUGS (3)
  1. AZITHROMYCIN [Suspect]
     Indication: PNEUMONIA
     Route: 042
  2. CEFOTAXIME SODIUM [Concomitant]
     Indication: PNEUMONIA
     Route: 065
  3. COTRIM [Concomitant]
     Indication: PNEUMONIA
     Route: 065

REACTIONS (3)
  - BRADYCARDIA [None]
  - ELECTROCARDIOGRAM QT PROLONGED [None]
  - HYPERHIDROSIS [None]
